FAERS Safety Report 5786755-2 (Version None)
Quarter: 2008Q2

REPORT INFORMATION
  Report Type: 
  Country: None (occurrence: None)
  Receive Date: 20080618
  Receipt Date: 20080609
  Transmission Date: 20081010
  Serious: Yes (Other)
  Sender: FDA-Public Use
  Company Number: ADE2008-0237

PATIENT
  Age: 78 Year

DRUGS (2)
  1. SIMVASTATIN [Suspect]
     Dosage: 40MG
     Dates: end: 20050101
  2. ATORVASTATIN [Concomitant]

REACTIONS (2)
  - FATIGUE [None]
  - TRANSIENT ISCHAEMIC ATTACK [None]
